FAERS Safety Report 15391812 (Version 1)
Quarter: 2018Q3

REPORT INFORMATION
  Report Type: Spontaneous
  Country: US (occurrence: US)
  Receive Date: 20180910
  Receipt Date: 20180910
  Transmission Date: 20181010
  Serious: Yes (Hospitalization, Other)
  Sender: FDA-Public Use
  Company Number: None

PATIENT
  Age: 16 Year
  Sex: Female
  Weight: 60.75 kg

DRUGS (10)
  1. NAPROXEN. [Concomitant]
     Active Substance: NAPROXEN
  2. MIRALAX [Concomitant]
     Active Substance: POLYETHYLENE GLYCOL 3350
  3. PRILOSEC (OMEPRAZOLE) [Concomitant]
     Active Substance: OMEPRAZOLE MAGNESIUM
  4. FLUOXETINE [Suspect]
     Active Substance: FLUOXETINE HYDROCHLORIDE
     Indication: ANXIETY
     Dosage: ?          QUANTITY:2 CAPSULE(S);?
     Route: 048
     Dates: start: 20170901, end: 20180904
  5. PROZAC [Concomitant]
     Active Substance: FLUOXETINE HYDROCHLORIDE
  6. IRON [Concomitant]
     Active Substance: IRON
  7. DAILY VITAMIN [Concomitant]
     Active Substance: VITAMINS
  8. SUCRALFATE. [Concomitant]
     Active Substance: SUCRALFATE
  9. MELATONIN [Concomitant]
     Active Substance: MELATONIN
  10. FAMOTIDINE. [Concomitant]
     Active Substance: FAMOTIDINE

REACTIONS (5)
  - Constipation [None]
  - Faecaloma [None]
  - Dysmenorrhoea [None]
  - Gastrointestinal haemorrhage [None]
  - Anxiety [None]

NARRATIVE: CASE EVENT DATE: 20180815
